FAERS Safety Report 8781305 (Version 1)
Quarter: 2012Q4

REPORT INFORMATION
  Report Type: 
  Country: US (occurrence: US)
  Receive Date: 20120913
  Receipt Date: 20120913
  Transmission Date: 20130627
  Serious: No
  Sender: FDA-Public Use
  Company Number: US-VERTEX PHARMACEUTICAL INC.-AE-2012-007965

PATIENT
  Age: 65 Year
  Sex: Female
  Weight: 58.18 kg

DRUGS (6)
  1. INCIVEK [Suspect]
     Indication: HEPATITIS C
     Route: 048
     Dates: start: 20120416, end: 20120430
  2. INCIVEK [Suspect]
     Route: 048
     Dates: start: 20120430
  3. RIBAVIRIN [Concomitant]
     Indication: HEPATITIS C
     Route: 048
     Dates: start: 20120416, end: 20120430
  4. RIBAVIRIN [Concomitant]
     Route: 048
     Dates: start: 20120430, end: 20120525
  5. PEGASYS [Concomitant]
     Indication: HEPATITIS C
     Route: 058
     Dates: start: 20120416
  6. ASPIRIN [Concomitant]
     Indication: PAIN
     Route: 048

REACTIONS (7)
  - Incorrect dose administered [Recovered/Resolved]
  - Dyspnoea [Not Recovered/Not Resolved]
  - Headache [Not Recovered/Not Resolved]
  - White blood cell count decreased [Not Recovered/Not Resolved]
  - Fatigue [Not Recovered/Not Resolved]
  - Rash generalised [Recovered/Resolved]
  - Anaemia [Not Recovered/Not Resolved]
